FAERS Safety Report 11283750 (Version 4)
Quarter: 2017Q1

REPORT INFORMATION
  Report Type: Report from Study
  Country: HK (occurrence: HK)
  Receive Date: 20150720
  Receipt Date: 20170308
  Transmission Date: 20170428
  Serious: Yes (Hospitalization)
  Sender: FDA-Public Use
  Company Number: HK-OTSUKA-2015_005512

PATIENT
  Age: 87 Year
  Sex: Male

DRUGS (10)
  1. TERAZOSIN HYDROCHLORIDE. [Concomitant]
     Active Substance: TERAZOSIN HYDROCHLORIDE
     Indication: URINARY RETENTION
     Dosage: 2 MG, QD
     Route: 065
     Dates: start: 20140107
  2. METHYL SALICYLATE [Concomitant]
     Active Substance: METHYL SALICYLATE
     Indication: CEREBRAL INFARCTION
     Dosage: UNK, TID PRN
     Route: 065
     Dates: start: 20150119
  3. CILOSTAZOL. [Suspect]
     Active Substance: CILOSTAZOL
     Indication: CEREBRAL INFARCTION
     Dosage: UNK
     Route: 048
     Dates: start: 20140322, end: 20150720
  4. FAMOTIDINE. [Concomitant]
     Active Substance: FAMOTIDINE
     Indication: PARKINSONISM
     Dosage: 40 MG, QD
     Route: 065
     Dates: start: 20131210
  5. DISTIGMINE BROMIDE [Concomitant]
     Active Substance: DISTIGMINE BROMIDE
     Indication: HYPERTENSION
     Dosage: 2.5 MG, QD
     Route: 065
     Dates: start: 20131223
  6. MOMETASON FUROATE [Concomitant]
     Indication: CEREBRAL INFARCTION
     Dosage: UNK, QD PRN
     Route: 065
     Dates: start: 20150119
  7. TIOCONAZOL [Concomitant]
     Indication: CEREBRAL INFARCTION
     Dosage: UNK, QD
     Route: 065
     Dates: start: 20150119
  8. MADOPAR [Concomitant]
     Active Substance: BENSERAZIDE HYDROCHLORIDE\LEVODOPA
     Indication: CEREBRAL INFARCTION
     Dosage: 62.5 MG, BID
     Route: 065
     Dates: start: 20150420
  9. SIMVASTATIN. [Concomitant]
     Active Substance: SIMVASTATIN
     Indication: GLAUCOMA
     Dosage: 5 MG, QD
     Route: 065
     Dates: start: 20131211
  10. BRIMONIDINE TARTRATE. [Concomitant]
     Active Substance: BRIMONIDINE TARTRATE
     Indication: CEREBRAL INFARCTION
     Dosage: 1 DROP, BID
     Route: 065
     Dates: start: 20131008

REACTIONS (1)
  - Lower respiratory tract infection [Recovered/Resolved]

NARRATIVE: CASE EVENT DATE: 20150711
